FAERS Safety Report 15551281 (Version 1)
Quarter: 2018Q4

REPORT INFORMATION
  Report Type: Spontaneous
  Country: IN (occurrence: IN)
  Receive Date: 20181025
  Receipt Date: 20181025
  Transmission Date: 20190205
  Serious: Yes (Hospitalization)
  Sender: FDA-Public Use
  Company Number: IN-MYLANLABS-2018M1077770

PATIENT
  Age: 15 Year
  Sex: Male

DRUGS (1)
  1. FLUTAMIDE. [Suspect]
     Active Substance: FLUTAMIDE
     Indication: JUVENILE ANGIOFIBROMA
     Dosage: THE TREATMENT WAS PLANNED FOR SIX WEEKS
     Route: 065

REACTIONS (2)
  - Cerebrospinal fluid leakage [Recovered/Resolved]
  - Meningitis [Recovered/Resolved]
